FAERS Safety Report 10042570 (Version 1)
Quarter: 2014Q1

REPORT INFORMATION
  Report Type: Report from Study
  Country: DE (occurrence: DE)
  Receive Date: 20140327
  Receipt Date: 20140327
  Transmission Date: 20141002
  Serious: Yes (Other)
  Sender: FDA-Public Use
  Company Number: PHHY2014DE035282

PATIENT
  Sex: Female

DRUGS (25)
  1. FTY 720 [Suspect]
     Indication: MULTIPLE SCLEROSIS
     Dosage: 0.5 MG, QD
     Route: 048
     Dates: start: 20110816
  2. CHLORPROTHIXENE [Concomitant]
     Indication: SLEEP DISORDER
     Dosage: 15 MG, QHS
     Route: 048
     Dates: start: 20030818
  3. OPIPRAMOL [Concomitant]
     Indication: SLEEP DISORDER
     Dosage: 15 MG, QHS
     Route: 048
     Dates: start: 20110816, end: 20110909
  4. OPIPRAMOL [Concomitant]
     Indication: ANXIETY
  5. VERTIGO-NEOGAMA [Concomitant]
     Indication: DIZZINESS
     Dosage: 50 MG, QD
     Route: 048
     Dates: start: 20110725, end: 20111028
  6. VERTIGO-NEOGAMA [Concomitant]
     Indication: SLEEP DISORDER
     Dosage: 100 MG, QD
     Route: 048
     Dates: start: 20020827
  7. VERTIGO-NEOGAMA [Concomitant]
     Indication: ANXIETY
  8. IBUPROFEN [Concomitant]
     Indication: PAIN IN EXTREMITY
     Dosage: 600 MG, QD
     Route: 048
  9. IBUPROFEN [Concomitant]
     Dosage: 600 MG, QD
     Route: 048
     Dates: start: 20130925, end: 20131101
  10. TAVOR (LORAZEPAM) [Concomitant]
     Dosage: 0.5 MG, PRN
     Route: 048
     Dates: start: 20111221, end: 20120123
  11. PANTOVIGAR [Concomitant]
     Indication: ALOPECIA
     Dosage: 3 DF, QD
     Route: 048
     Dates: start: 20120109
  12. DEACURA [Concomitant]
     Indication: ALOPECIA
     Dosage: UNK
     Route: 048
     Dates: start: 20120109
  13. URBASON                                 /GFR/ [Concomitant]
     Indication: MULTIPLE SCLEROSIS RELAPSE
     Dosage: 1000 MG, QD
     Route: 042
     Dates: start: 20120403, end: 20120405
  14. URBASON                                 /GFR/ [Concomitant]
     Dosage: 500 MG, QD
     Route: 042
     Dates: start: 20130503, end: 20130505
  15. URBASON                                 /GFR/ [Concomitant]
     Dosage: 1000 MG, QD
     Route: 042
     Dates: start: 20130617, end: 20130619
  16. URBASON                                 /GFR/ [Concomitant]
     Dosage: 1000 MG, QD
     Route: 042
     Dates: start: 20130924, end: 20130926
  17. ZITHROMAX [Concomitant]
     Indication: NASOPHARYNGITIS
     Dosage: 500 MG, QD
     Route: 048
     Dates: start: 20121026, end: 20121028
  18. ZITHROMAX [Concomitant]
     Indication: SINUSITIS
     Dosage: 500 MG, QD
     Route: 048
     Dates: start: 20130308, end: 20130310
  19. ZITHROMAX [Concomitant]
     Dosage: 500 MG, QD
     Route: 048
     Dates: start: 20140225, end: 20140227
  20. URBASON SOLUB [Concomitant]
     Indication: MULTIPLE SCLEROSIS RELAPSE
     Dosage: 500 MG, QD
     Route: 042
     Dates: start: 20121227, end: 20121229
  21. ACC [Concomitant]
     Indication: NASOPHARYNGITIS
     Dosage: 600 MG, QD
     Route: 048
     Dates: start: 20130308
  22. ACC [Concomitant]
     Indication: SINUSITIS
  23. METHYLPREDNISOLONE [Concomitant]
     Indication: MULTIPLE SCLEROSIS RELAPSE
     Dosage: 32 MG, QD
     Route: 048
     Dates: start: 20130507, end: 20130517
  24. METHYLPREDNISOLONE [Concomitant]
     Dosage: UNK
  25. METHYLPREDNISOLONE [Concomitant]
     Dosage: 32 MG, QD
     Route: 048
     Dates: start: 20130620, end: 20130704

REACTIONS (3)
  - Road traffic accident [Recovered/Resolved]
  - Amnesia [Recovered/Resolved]
  - Depressed level of consciousness [Recovered/Resolved]
